FAERS Safety Report 4610114-9 (Version None)
Quarter: 2005Q1

REPORT INFORMATION
  Report Type: 
  Country: None (occurrence: None)
  Receive Date: 20050316
  Receipt Date: 20050103
  Transmission Date: 20050727
  Serious: No
  Sender: FDA-Public Use
  Company Number: 04US08775

PATIENT
  Sex: Male

DRUGS (1)
  1. COMPAZINE [Suspect]
     Indication: NAUSEA
     Route: 065

REACTIONS (1)
  - DRUG INEFFECTIVE [None]
